FAERS Safety Report 4389275-5 (Version None)
Quarter: 2004Q2

REPORT INFORMATION
  Report Type: 
  Country: None (occurrence: None)
  Receive Date: 20040628
  Receipt Date: 20040625
  Transmission Date: 20050107
  Serious: Yes (Hospitalization)
  Sender: FDA-Public Use
  Company Number: 200418409BWH

PATIENT
  Age: 96 Year
  Sex: Female
  Weight: 72.5755 kg

DRUGS (2)
  1. AVELOX [Suspect]
     Indication: BRONCHITIS
     Dosage: 400 MG, QD, ORAL
     Route: 048
     Dates: start: 20040519, end: 20040525
  2. AVELOX [Suspect]
     Indication: PNEUMONIA
     Dosage: 400 MG, QD, ORAL
     Route: 048
     Dates: start: 20040519, end: 20040525

REACTIONS (3)
  - ASTHENIA [None]
  - DEHYDRATION [None]
  - VERTIGO [None]
